FAERS Safety Report 5028844-6 (Version None)
Quarter: 2006Q2

REPORT INFORMATION
  Report Type: 
  Country: None (occurrence: None)
  Receive Date: 20060619
  Receipt Date: 20060612
  Transmission Date: 20061013
  Serious: Yes (Hospitalization)
  Sender: FDA-Public Use
  Company Number: JP-AVENTIS-200611810JP

PATIENT
  Age: 50 Year
  Sex: Female
  Weight: 60 kg

DRUGS (5)
  1. ARAVA [Suspect]
     Indication: RHEUMATOID ARTHRITIS
     Route: 048
     Dates: start: 20050715, end: 20050717
  2. ARAVA [Suspect]
     Route: 048
     Dates: start: 20050718, end: 20050729
  3. MOBIC [Concomitant]
     Indication: RHEUMATOID ARTHRITIS
     Route: 048
     Dates: end: 20050729
  4. ZANTAC [Concomitant]
     Indication: GASTRITIS
     Route: 048
     Dates: end: 20050729
  5. ZANTAC [Concomitant]
     Indication: PROPHYLAXIS
     Route: 048
     Dates: end: 20050729

REACTIONS (13)
  - BAND NEUTROPHIL PERCENTAGE INCREASED [None]
  - BLOOD ALBUMIN DECREASED [None]
  - BLOOD ALKALINE PHOSPHATASE INCREASED [None]
  - BLOOD LACTATE DEHYDROGENASE INCREASED [None]
  - ERYTHEMA [None]
  - LYMPHOCYTE PERCENTAGE DECREASED [None]
  - PLATELET COUNT INCREASED [None]
  - PURPURA [None]
  - PYREXIA [None]
  - RASH [None]
  - RED BLOOD CELL COUNT DECREASED [None]
  - WHITE BLOOD CELL COUNT DECREASED [None]
  - WHITE BLOOD CELL COUNT INCREASED [None]
